FAERS Safety Report 5492449-3 (Version None)
Quarter: 2007Q4

REPORT INFORMATION
  Report Type: 
  Country: None (occurrence: None)
  Receive Date: 20071015
  Receipt Date: 20070810
  Transmission Date: 20080405
  Serious: No
  Sender: FDA-Public Use
  Company Number: 2007SP002812

PATIENT
  Age: 79 Year
  Sex: Female
  Weight: 72.5755 kg

DRUGS (8)
  1. LUNESTA [Suspect]
     Indication: INSOMNIA
     Dosage: 1 MG; HS; ORAL
     Route: 048
     Dates: start: 20070809
  2. BENICAR [Concomitant]
  3. LOTREL [Concomitant]
  4. WELCHOL [Concomitant]
  5. ZETIA [Concomitant]
  6. SYNTHROID [Concomitant]
  7. ACTONEL [Concomitant]
  8. LUMIGAN [Concomitant]

REACTIONS (1)
  - DYSGEUSIA [None]
